FAERS Safety Report 17680196 (Version 8)
Quarter: 2021Q4

REPORT INFORMATION
  Report Type: Report from Study
  Country: JP (occurrence: None)
  Receive Date: 20200417
  Receipt Date: 20211230
  Transmission Date: 20220303
  Serious: Yes (Hospitalization)
  Sender: FDA-Public Use
  Company Number: JP-EISAI MEDICAL RESEARCH-EC-2020-073346

PATIENT
  Age: 75 Year
  Sex: Male
  Weight: 56 kg

DRUGS (30)
  1. LENVATINIB [Suspect]
     Active Substance: LENVATINIB
     Indication: Hepatocellular carcinoma
     Route: 048
     Dates: start: 20190205, end: 20190217
  2. LENVATINIB [Suspect]
     Active Substance: LENVATINIB
     Route: 048
     Dates: start: 20190226, end: 20200628
  3. EPIRUBICIN HYDROCHLORIDE [Concomitant]
     Active Substance: EPIRUBICIN HYDROCHLORIDE
     Route: 065
  4. LIPIODOL ULTRAFLUIDE [Concomitant]
     Route: 065
  5. GELATIN [Concomitant]
     Active Substance: GELATIN
     Route: 065
  6. PENTAZOCINE [Concomitant]
     Active Substance: PENTAZOCINE
     Route: 065
  7. ATARAX [Concomitant]
     Active Substance: HYDROXYZINE HYDROCHLORIDE
     Route: 065
  8. SODIUM CHLORIDE [Concomitant]
     Active Substance: SODIUM CHLORIDE
     Route: 065
  9. SOLU-CORTEF [Concomitant]
     Active Substance: HYDROCORTISONE SODIUM SUCCINATE
     Route: 065
  10. GRANISETRON HYDROCHLORIDE [Concomitant]
     Active Substance: GRANISETRON HYDROCHLORIDE
     Route: 065
  11. DEXTROSE\SODIUM CHLORIDE\SODIUM LACTATE [Concomitant]
     Active Substance: DEXTROSE\SODIUM CHLORIDE\SODIUM LACTATE
     Route: 065
  12. HEPARIN [Concomitant]
     Active Substance: HEPARIN SODIUM
     Route: 065
  13. BIAPENEM [Concomitant]
     Active Substance: BIAPENEM
     Route: 065
  14. IOPAMIRON [Concomitant]
     Active Substance: IOPAMIDOL
     Route: 065
  15. VEMLIDY [Concomitant]
     Active Substance: TENOFOVIR ALAFENAMIDE FUMARATE
     Indication: Hepatitis B
     Route: 048
  16. ACTOS [Concomitant]
     Active Substance: PIOGLITAZONE HYDROCHLORIDE
     Indication: Diabetes mellitus
     Route: 048
  17. LUSEOGLIFLOZIN [Concomitant]
     Active Substance: LUSEOGLIFLOZIN
     Indication: Diabetes mellitus
     Route: 048
  18. SULPIRIDE [Concomitant]
     Active Substance: SULPIRIDE
     Indication: Depression
     Route: 048
  19. UNIPHYL [Concomitant]
     Active Substance: THEOPHYLLINE ANHYDROUS
     Indication: Asthma
     Route: 048
  20. NEXIUM [Concomitant]
     Active Substance: ESOMEPRAZOLE MAGNESIUM
     Indication: Gastrooesophageal reflux disease
     Route: 048
  21. NALFURAFINE HYDROCHLORIDE [Concomitant]
     Active Substance: NALFURAFINE HYDROCHLORIDE
     Indication: Pruritus
     Route: 048
  22. TALION [Concomitant]
     Indication: Pruritus
     Route: 048
  23. HERBESSER [Concomitant]
     Active Substance: DILTIAZEM HYDROCHLORIDE
     Indication: Angina pectoris
     Route: 048
  24. MAGNESIUM OXIDE [Concomitant]
     Active Substance: MAGNESIUM OXIDE
     Indication: Constipation
     Route: 048
  25. REMINYL [Concomitant]
     Active Substance: GALANTAMINE
     Indication: Dementia Alzheimer^s type
     Route: 048
  26. GLYCOSAMINOGLYCANS [Concomitant]
     Active Substance: GLYCOSAMINOGLYCANS
     Indication: Skin disorder prophylaxis
     Route: 062
     Dates: start: 20190205
  27. LEVOTHYROXINE [Concomitant]
     Active Substance: LEVOTHYROXINE
     Indication: Hypothyroidism
     Route: 048
     Dates: start: 20190325
  28. FLUTICASONE FUROATE\VILANTEROL TRIFENATATE [Concomitant]
     Active Substance: FLUTICASONE FUROATE\VILANTEROL TRIFENATATE
     Indication: Asthma
     Route: 055
  29. LEVOFLOXACIN [Concomitant]
     Active Substance: LEVOFLOXACIN
     Indication: Bronchitis
     Route: 048
     Dates: start: 20191111
  30. SPIRONOLACTONE [Concomitant]
     Active Substance: SPIRONOLACTONE
     Indication: Ascites
     Route: 048
     Dates: start: 20200305

REACTIONS (3)
  - Cholangitis acute [Recovered/Resolved]
  - Decreased appetite [Recovered/Resolved]
  - Pneumonia [Recovered/Resolved]

NARRATIVE: CASE EVENT DATE: 20200414
